FAERS Safety Report 7545265-2 (Version None)
Quarter: 2011Q2

REPORT INFORMATION
  Report Type: 
  Country: None (occurrence: None)
  Receive Date: 20110614
  Receipt Date: 20110531
  Transmission Date: 20111010
  Serious: No
  Sender: FDA-Public Use
  Company Number: US-B.I. PHARMACEUTICALS,INC./RIDGEFIELD-2011-BP-14352BP

PATIENT
  Sex: Female

DRUGS (13)
  1. AMBIEN [Concomitant]
     Indication: INSOMNIA
     Dosage: 10 MG
     Route: 048
     Dates: start: 20010101
  2. TIMOPTIC [Concomitant]
     Indication: GLAUCOMA
     Route: 061
  3. DITIAZEM [Concomitant]
     Indication: ATRIAL FIBRILLATION
     Dosage: 180 MG
     Route: 048
     Dates: start: 20110501
  4. GLIPIZIDE [Concomitant]
     Indication: DIABETES MELLITUS
     Dosage: 5 MG
     Route: 048
     Dates: start: 20050101
  5. LUMIGAN [Concomitant]
     Indication: GLAUCOMA
     Route: 061
  6. CYMBALTA [Concomitant]
     Indication: DEPRESSION
     Dosage: 60 MG
     Route: 048
     Dates: start: 20050101
  7. PRADAXA [Suspect]
     Indication: ATRIAL FIBRILLATION
     Dosage: 300 MG
     Route: 048
     Dates: start: 20110502
  8. METOPROLOL [Concomitant]
     Indication: ATRIAL FIBRILLATION
     Dosage: 50 MG
     Route: 048
     Dates: start: 20110501
  9. MERFORMIN [Concomitant]
     Indication: DIABETES MELLITUS
     Dosage: 2000 MG
     Route: 048
     Dates: start: 20020101
  10. AZOPT [Concomitant]
     Indication: GLAUCOMA
     Route: 061
  11. DIGOXIN [Concomitant]
     Indication: ATRIAL FIBRILLATION
     Dosage: 0.25 MG
     Route: 048
     Dates: start: 20110501
  12. TRICOR [Concomitant]
     Indication: BLOOD CHOLESTEROL INCREASED
     Dosage: 145 MG
     Route: 048
     Dates: start: 20020101
  13. MICARDIS HCT [Concomitant]
     Indication: HYPERTENSION
     Route: 048
     Dates: start: 20020101

REACTIONS (2)
  - URINARY TRACT INFECTION [None]
  - BLOOD URINE PRESENT [None]
